FAERS Safety Report 4801890-0 (Version None)
Quarter: 2005Q4

REPORT INFORMATION
  Report Type: 
  Country: None (occurrence: None)
  Receive Date: 20051018
  Receipt Date: 20051007
  Transmission Date: 20060501
  Serious: Yes (Other)
  Sender: FDA-Public Use
  Company Number: PHEH2005US11232

PATIENT
  Age: 14 Year
  Sex: Female

DRUGS (6)
  1. FOCALIN XR [Suspect]
     Indication: ATTENTION DEFICIT/HYPERACTIVITY DISORDER
     Dosage: 25 MG, QD
     Route: 048
     Dates: start: 20050908
  2. LAMICTAL [Concomitant]
     Dosage: 25 MG X3
  3. RISPERDAL [Concomitant]
     Dosage: 1,3
  4. STRATTERA [Concomitant]
     Dosage: 60
  5. LEXAPRO [Concomitant]
     Dosage: 10
  6. TRAZODONE HCL [Concomitant]
     Dosage: 100

REACTIONS (1)
  - MITRAL VALVE INCOMPETENCE [None]
